FAERS Safety Report 8522416-4 (Version None)
Quarter: 2012Q3

REPORT INFORMATION
  Report Type: 
  Country: None (occurrence: None)
  Receive Date: 20120719
  Receipt Date: 20120709
  Transmission Date: 20120928
  Serious: Yes (Other)
  Sender: FDA-Public Use
  Company Number: US-BAXTER-2012BAX010914

PATIENT
  Age: 75 Year
  Sex: Male

DRUGS (1)
  1. TISSEEL VH [Suspect]
     Route: 061
     Dates: start: 20120706

REACTIONS (1)
  - SEROMA [None]
